FAERS Safety Report 4967234-9 (Version None)
Quarter: 2006Q2

REPORT INFORMATION
  Report Type: 
  Country: None (occurrence: None)
  Receive Date: 20060410
  Receipt Date: 20060403
  Transmission Date: 20061013
  Serious: Yes (Life-Threatening)
  Sender: FDA-Public Use
  Company Number: 2006SE01932

PATIENT
  Age: 27194 Day
  Sex: Female

DRUGS (6)
  1. BLOPRESS TABLETS 2 [Suspect]
     Indication: HYPERTENSION
     Route: 048
  2. ATELEC [Concomitant]
     Route: 048
  3. UBRETID [Concomitant]
     Route: 048
  4. MAAREDGE(DRIED ALUMINUM HYDROXIDE GEL/MAGNESIUM HYDROXIDE) [Concomitant]
     Route: 048
  5. LOXONIN [Concomitant]
     Route: 048
  6. ZESTROMIN [Concomitant]
     Route: 048

REACTIONS (6)
  - ATRIOVENTRICULAR BLOCK [None]
  - BRADYARRHYTHMIA [None]
  - DILATATION ATRIAL [None]
  - HYPERKALAEMIA [None]
  - MITRAL VALVE INCOMPETENCE [None]
  - VENTRICULAR HYPERTROPHY [None]
